FAERS Safety Report 20937297 (Version 1)
Quarter: 2022Q2

REPORT INFORMATION
  Report Type: Report from Study
  Country: US (occurrence: None)
  Receive Date: 20220609
  Receipt Date: 20220609
  Transmission Date: 20220721
  Serious: Yes (Hospitalization)
  Sender: FDA-Public Use
  Company Number: US-ROCHE-2181867

PATIENT
  Age: 51 Year
  Sex: Female
  Weight: 85.2 kg

DRUGS (2)
  1. ATEZOLIZUMAB [Suspect]
     Active Substance: ATEZOLIZUMAB
     Indication: Breast cancer metastatic
     Dosage: ON 20/AUG/2018, SHE RECEIVED HER MOST RECENT DOSE OF ATEZOLIZUMAB PRIOR TO THE ONSET ADVERSE EVENT.
     Route: 042
     Dates: start: 20180820
  2. CARBOPLATIN [Suspect]
     Active Substance: CARBOPLATIN
     Indication: Breast cancer
     Dosage: ON 20/AUG/2018, SHE RECEIVED HER MOST RECENT DOSE OF CARBOPLATIN PRIOR TO THE ONSET ADVERSE EVENT.
     Route: 042
     Dates: start: 20180820

REACTIONS (1)
  - Febrile neutropenia [Recovered/Resolved]

NARRATIVE: CASE EVENT DATE: 20180903
